FAERS Safety Report 17727678 (Version 2)
Quarter: 2020Q3

REPORT INFORMATION
  Report Type: Spontaneous
  Country: US (occurrence: US)
  Receive Date: 20200430
  Receipt Date: 20200720
  Transmission Date: 20201102
  Serious: Yes (Hospitalization)
  Sender: FDA-Public Use
  Company Number: US-FRESENIUS MEDICAL CARE RENAL THERAPIES GROUP-FMC-2004-000460

PATIENT
  Age: 83 Year
  Sex: Male
  Weight: 69 kg

DRUGS (3)
  1. DELFLEX WITH DEXTROSE 2.5% LOW MAGNESIUM LOW CALCIUM [Suspect]
     Active Substance: CALCIUM CHLORIDE\DEXTROSE\MAGNESIUM CHLORIDE\SODIUM CHLORIDE\SODIUM LACTATE
     Indication: END STAGE RENAL DISEASE
     Dosage: 5 EXCHANGES, FILL VOLUME OF 2400 ML, DWELL TIME OF 1 HOUR AND 30 MINUTES WITH NO LAST FILL OR DAYTI
     Route: 033
  2. DELFLEX WITH DEXTROSE 4.25% LOW MAGNESIUM LOW CALCIUM [Suspect]
     Active Substance: CALCIUM CHLORIDE\DEXTROSE\MAGNESIUM CHLORIDE\SODIUM CHLORIDE\SODIUM LACTATE
     Indication: END STAGE RENAL DISEASE
     Dosage: 5 EXCHANGES, FILL VOLUME OF 2400 ML, DWELL TIME OF 1 HOUR AND 30 MINUTES WITH NO LAST FILL OR DAYTI
     Route: 033
  3. DELFLEX WITH DEXTROSE 1.5% LOW MAGNESIUM LOW CALCIUM [Suspect]
     Active Substance: CALCIUM CHLORIDE\DEXTROSE\MAGNESIUM CHLORIDE\SODIUM CHLORIDE\SODIUM LACTATE
     Indication: END STAGE RENAL DISEASE
     Dosage: 5 EXCHANGES, FILL VOLUME OF 2400 ML, DWELL TIME OF 1 HOUR AND 30 MINUTES WITH NO LAST FILL OR DAYTI
     Route: 033

REACTIONS (1)
  - Gastrointestinal haemorrhage [Recovered/Resolved]
